FAERS Safety Report 16079092 (Version 1)
Quarter: 2019Q1

REPORT INFORMATION
  Report Type: Spontaneous
  Country: FR (occurrence: FR)
  Receive Date: 20190315
  Receipt Date: 20190315
  Transmission Date: 20190418
  Serious: Yes (Hospitalization)
  Sender: FDA-Public Use
  Company Number: FR-ASTRAZENECA-2019SE40309

PATIENT
  Sex: Female

DRUGS (5)
  1. XEROQUEL [Suspect]
     Active Substance: QUETIAPINE FUMARATE
     Route: 048
  2. TEMESTA [Concomitant]
  3. THERALENE [Concomitant]
     Active Substance: TRIMEPRAZINE
  4. CLOPIXOL [Concomitant]
     Active Substance: ZUCLOPENTHIXOL
  5. IMOVANE [Concomitant]
     Active Substance: ZOPICLONE

REACTIONS (1)
  - Obesity [Unknown]
